FAERS Safety Report 22046268 (Version 1)
Quarter: 2023Q1

REPORT INFORMATION
  Report Type: Spontaneous
  Country: CA (occurrence: CA)
  Receive Date: 20230228
  Receipt Date: 20230228
  Transmission Date: 20230418
  Serious: Yes (Hospitalization, Other)
  Sender: FDA-Public Use
  Company Number: CA-PFIZER INC-202300081235

PATIENT
  Age: 34 Year
  Sex: Female
  Weight: 84 kg

DRUGS (17)
  1. CYTARABINE [Suspect]
     Active Substance: CYTARABINE
     Indication: Non-Hodgkin^s lymphoma
     Dosage: 3900 MG, CYCLIC
  2. METHOTREXATE SODIUM [Suspect]
     Active Substance: METHOTREXATE SODIUM
     Indication: Non-Hodgkin^s lymphoma
     Dosage: 975 MG, CYCLIC
  3. METHOTREXATE SODIUM [Suspect]
     Active Substance: METHOTREXATE SODIUM
     Dosage: 5850 MG, CYCLIC
  4. RITUXIMAB [Suspect]
     Active Substance: RITUXIMAB
     Indication: Non-Hodgkin^s lymphoma
     Dosage: 730 MG, CYCLIC
  5. THIOTEPA [Suspect]
     Active Substance: THIOTEPA
     Indication: Non-Hodgkin^s lymphoma
     Dosage: 60 MG, CYCLIC
  6. DEXAMETHASONE [Concomitant]
     Active Substance: DEXAMETHASONE
  7. FILGRASTIM [Concomitant]
     Active Substance: FILGRASTIM
  8. FUROSEMIDE [Concomitant]
     Active Substance: FUROSEMIDE
  9. GOSERELIN ACETATE [Concomitant]
     Active Substance: GOSERELIN ACETATE
  10. LORATADINE [Concomitant]
     Active Substance: LORATADINE
     Route: 065
  11. LORAZEPAM [Concomitant]
     Active Substance: LORAZEPAM
     Route: 065
  12. METOCLOPRAMIDE [Concomitant]
     Active Substance: METOCLOPRAMIDE
  13. OLANZAPINE [Concomitant]
     Active Substance: OLANZAPINE
  14. ONDANSETRON [Concomitant]
     Active Substance: ONDANSETRON
  15. POLYETHYLENE GLYCOLS [Concomitant]
     Active Substance: POLYETHYLENE GLYCOLS
  16. TINZAPARIN [Concomitant]
     Active Substance: TINZAPARIN
     Route: 065
  17. SULFAMETHOXAZOLE\TRIMETHOPRIM [Concomitant]
     Active Substance: SULFAMETHOXAZOLE\TRIMETHOPRIM

REACTIONS (3)
  - Bacteraemia [Recovered/Resolved]
  - Febrile neutropenia [Recovered/Resolved]
  - Moraxella infection [Recovered/Resolved]
